FAERS Safety Report 9786270 (Version 8)
Quarter: 2017Q1

REPORT INFORMATION
  Report Type: Report from Study
  Country: US (occurrence: US)
  Receive Date: 20131227
  Receipt Date: 20170103
  Transmission Date: 20170429
  Serious: Yes (Hospitalization, Other)
  Sender: FDA-Public Use
  Company Number: US-ACTELION-A-US2013-92706

PATIENT
  Age: 47 Year
  Sex: Female

DRUGS (4)
  1. TRACLEER [Suspect]
     Active Substance: BOSENTAN
     Indication: PULMONARY ARTERIAL HYPERTENSION
     Dosage: 125 MG, BID
     Route: 048
     Dates: start: 20091006
  2. ASPIRIN. [Concomitant]
     Active Substance: ASPIRIN
  3. COUMADIN [Concomitant]
     Active Substance: WARFARIN SODIUM
  4. SILDENAFIL. [Concomitant]
     Active Substance: SILDENAFIL

REACTIONS (29)
  - Injury [Unknown]
  - Seizure [Unknown]
  - Chest discomfort [Unknown]
  - Nocturnal dyspnoea [Unknown]
  - Palpitations [Unknown]
  - Catheterisation cardiac [Unknown]
  - Road traffic accident [Unknown]
  - Pneumonia [Unknown]
  - Fatigue [Unknown]
  - Condition aggravated [Unknown]
  - Cough [Unknown]
  - Headache [Unknown]
  - Respiratory disorder [Unknown]
  - Pulmonary arterial hypertension [Unknown]
  - Oedema [Unknown]
  - Upper respiratory tract infection [Unknown]
  - Dizziness [Unknown]
  - Exercise tolerance decreased [Unknown]
  - Hypersensitivity [Unknown]
  - Loss of consciousness [Unknown]
  - Chest pain [Unknown]
  - Nervousness [Unknown]
  - Dyspnoea exertional [Unknown]
  - Influenza [Unknown]
  - Syncope [Unknown]
  - Dyspnoea [Unknown]
  - Anxiety [Unknown]
  - Weight increased [Unknown]
  - Rash [Unknown]

NARRATIVE: CASE EVENT DATE: 201312
